FAERS Safety Report 4497418-8 (Version None)
Quarter: 2004Q4

REPORT INFORMATION
  Report Type: 
  Country: None (occurrence: None)
  Receive Date: 20041104
  Receipt Date: 20041018
  Transmission Date: 20050328
  Serious: Yes (Hospitalization)
  Sender: FDA-Public Use
  Company Number: STA-AE-04-036

PATIENT
  Age: 47 Year
  Sex: Female

DRUGS (4)
  1. DILTIAZEM [Suspect]
     Indication: SINUS TACHYCARDIA
     Dosage: 120 MG/D
  2. CARBAMAZEPINE [Suspect]
     Indication: BIPOLAR DISORDER
     Dosage: 800 MG
  3. CARBAMAZEPINE [Suspect]
     Indication: BIPOLAR DISORDER
     Dosage: 1600 MG DAILY
  4. CARBAMAZEPINE [Concomitant]

REACTIONS (11)
  - AGITATION [None]
  - ATAXIA [None]
  - CEREBELLAR SYNDROME [None]
  - CONFUSIONAL STATE [None]
  - DISORIENTATION [None]
  - DRUG LEVEL INCREASED [None]
  - DYSARTHRIA [None]
  - MYDRIASIS [None]
  - OPHTHALMOPLEGIA [None]
  - POST PROCEDURAL COMPLICATION [None]
  - SINUS TACHYCARDIA [None]
